FAERS Safety Report 12221944 (Version 3)
Quarter: 2016Q3

REPORT INFORMATION
  Report Type: Spontaneous
  Country: US (occurrence: US)
  Receive Date: 20160330
  Receipt Date: 20160804
  Transmission Date: 20161109
  Serious: Yes (Other)
  Sender: FDA-Public Use
  Company Number: US-BAYER-2016-055638

PATIENT
  Age: 33 Year
  Sex: Female
  Weight: 124.72 kg

DRUGS (4)
  1. AVELOX [Suspect]
     Active Substance: MOXIFLOXACIN HYDROCHLORIDE
     Indication: INCISIONAL HERNIA
     Dosage: UNK
     Dates: start: 201212
  2. CIPROFLOXACIN. [Suspect]
     Active Substance: CIPROFLOXACIN
     Dosage: 500 MG, UNK
     Route: 048
     Dates: start: 20130117, end: 20130627
  3. AVELOX [Suspect]
     Active Substance: MOXIFLOXACIN HYDROCHLORIDE
     Indication: INCISIONAL HERNIA
     Dosage: UNK
     Route: 048
     Dates: start: 201111
  4. AVELOX [Suspect]
     Active Substance: MOXIFLOXACIN HYDROCHLORIDE
     Indication: INCISIONAL HERNIA
     Dosage: UNK
     Route: 048
     Dates: start: 2013

REACTIONS (8)
  - Neuropathy peripheral [Not Recovered/Not Resolved]
  - Musculoskeletal injury [None]
  - Anxiety [None]
  - Heart injury [None]
  - Injury [Not Recovered/Not Resolved]
  - Mental disorder [None]
  - Skin injury [None]
  - Nervous system disorder [None]

NARRATIVE: CASE EVENT DATE: 201111
